FAERS Safety Report 25725321 (Version 1)
Quarter: 2025Q3

REPORT INFORMATION
  Report Type: Spontaneous
  Country: US (occurrence: US)
  Receive Date: 20250826
  Receipt Date: 20250826
  Transmission Date: 20251021
  Serious: Yes (Other)
  Sender: ROCHE
  Company Number: US-ROCHE-10000364572

PATIENT
  Sex: Female

DRUGS (3)
  1. AVASTIN [Suspect]
     Active Substance: BEVACIZUMAB
     Indication: Product used for unknown indication
     Route: 065
  2. PAZOPANIB [Concomitant]
     Active Substance: PAZOPANIB
  3. IRON [Concomitant]
     Active Substance: IRON

REACTIONS (1)
  - Anaemia [Unknown]
